FAERS Safety Report 5761259-1 (Version None)
Quarter: 2008Q2

REPORT INFORMATION
  Report Type: 
  Country: None (occurrence: None)
  Receive Date: 20080606
  Receipt Date: 20080530
  Transmission Date: 20081010
  Serious: Yes (Disabling)
  Sender: FDA-Public Use
  Company Number: US-JNJFOC-20080600666

PATIENT
  Sex: Female

DRUGS (1)
  1. FLOXIN [Suspect]
     Indication: DRUG USE FOR UNKNOWN INDICATION
     Route: 065

REACTIONS (4)
  - DEPRESSION [None]
  - INSOMNIA [None]
  - PHOTOPHOBIA [None]
  - PSYCHOTIC DISORDER [None]
